FAERS Safety Report 11104905 (Version 12)
Quarter: 2016Q3

REPORT INFORMATION
  Report Type: Spontaneous
  Country: US (occurrence: US)
  Receive Date: 20150511
  Receipt Date: 20160904
  Transmission Date: 20161109
  Serious: Yes (Hospitalization, Other)
  Sender: FDA-Public Use
  Company Number: US-DSJP-DSU-2015-113894

PATIENT

DRUGS (12)
  1. ALPRAZOLAM. [Concomitant]
     Active Substance: ALPRAZOLAM
     Indication: PRODUCT USED FOR UNKNOWN INDICATION
     Dosage: 5 MG, QD
  2. ATENOLOL. [Concomitant]
     Active Substance: ATENOLOL
     Indication: HYPERTENSION
     Dosage: 50 MG, QD
     Route: 048
     Dates: start: 20081021
  3. ATENOLOL. [Concomitant]
     Active Substance: ATENOLOL
     Dosage: 50 MG, QD
     Route: 048
  4. FOLIC ACID. [Concomitant]
     Active Substance: FOLIC ACID
     Indication: PRODUCT USED FOR UNKNOWN INDICATION
     Dosage: 1 MG, QD
     Dates: start: 2010
  5. ATENOLOL. [Concomitant]
     Active Substance: ATENOLOL
     Dosage: UNK
     Dates: start: 2009
  6. BENICAR [Suspect]
     Active Substance: OLMESARTAN MEDOXOMIL
     Indication: HYPERTENSION
     Dosage: 20 MG, QD
     Dates: start: 2007, end: 20141203
  7. TRAMADOL. [Concomitant]
     Active Substance: TRAMADOL
     Dosage: 50 MG, UNK
  8. BENICAR HCT [Suspect]
     Active Substance: HYDROCHLOROTHIAZIDE\OLMESARTAN MEDOXOMIL
     Indication: HYPERTENSION
     Dosage: QD
     Dates: start: 2011, end: 2012
  9. TRAMADOL. [Concomitant]
     Active Substance: TRAMADOL
     Indication: ARTHRALGIA
     Dosage: 1-2 Q 6 HOURS
  10. TYLENOL [Concomitant]
     Active Substance: ACETAMINOPHEN
     Indication: PRODUCT USED FOR UNKNOWN INDICATION
     Dosage: UNK
  11. VOLTAREN [Concomitant]
     Active Substance: DICLOFENAC SODIUM
     Indication: PRODUCT USED FOR UNKNOWN INDICATION
     Dosage: 50 MG, BID
  12. BENICAR [Suspect]
     Active Substance: OLMESARTAN MEDOXOMIL
     Dosage: 40 MG, QD
     Dates: start: 2007, end: 20141203

REACTIONS (16)
  - Hepatitis non-A non-B non-C [Recovered/Resolved]
  - Depression [Unknown]
  - Normochromic normocytic anaemia [Not Recovered/Not Resolved]
  - Rectal polyp [Unknown]
  - Nocturia [Unknown]
  - Neoplasm malignant [Unknown]
  - Anaemia [Recovered/Resolved]
  - Hypertension [Unknown]
  - Acute kidney injury [Not Recovered/Not Resolved]
  - Dizziness [Recovered/Resolved]
  - C-reactive protein increased [Recovered/Resolved]
  - Chronic kidney disease [Not Recovered/Not Resolved]
  - Renal disorder [Not Recovered/Not Resolved]
  - Malabsorption [Not Recovered/Not Resolved]
  - Irritable bowel syndrome [Unknown]
  - Leukoplakia [Unknown]

NARRATIVE: CASE EVENT DATE: 2007
